FAERS Safety Report 12666904 (Version 1)
Quarter: 2016Q3

REPORT INFORMATION
  Report Type: Spontaneous
  Country: US (occurrence: US)
  Receive Date: 20160819
  Receipt Date: 20160819
  Transmission Date: 20161109
  Serious: Yes (Death, Hospitalization)
  Sender: FDA-Public Use
  Company Number: US-SUN PHARMACEUTICAL INDUSTRIES LTD-2016US-121328

PATIENT
  Age: 91 Year
  Sex: Male

DRUGS (1)
  1. AZITHROMYCIN ANHYDROUS. [Suspect]
     Active Substance: AZITHROMYCIN ANHYDROUS
     Indication: PRODUCT USED FOR UNKNOWN INDICATION
     Dosage: 500 MG, SINGLE
     Route: 042

REACTIONS (5)
  - Torsade de pointes [Unknown]
  - Cardiac arrest [Unknown]
  - Arrhythmia [Fatal]
  - Ventricular tachycardia [Unknown]
  - Electrocardiogram QT prolonged [Unknown]
